FAERS Safety Report 8529467-4 (Version None)
Quarter: 2012Q3

REPORT INFORMATION
  Report Type: 
  Country: None (occurrence: None)
  Receive Date: 20120723
  Receipt Date: 20120710
  Transmission Date: 20120928
  Serious: Yes (Other)
  Sender: FDA-Public Use
  Company Number: ES-JNJFOC-20120212164

PATIENT
  Age: 18 Year
  Sex: Female

DRUGS (2)
  1. USTEKINUMAB [Suspect]
     Indication: PSORIASIS
     Route: 050
  2. USTEKINUMAB [Suspect]
     Indication: CROHN'S DISEASE
     Route: 050

REACTIONS (3)
  - ANAL ABSCESS [None]
  - ANAL FISTULA [None]
  - OFF LABEL USE [None]
